FAERS Safety Report 16130009 (Version 1)
Quarter: 2019Q1

REPORT INFORMATION
  Report Type: Report from Study
  Country: ES (occurrence: ES)
  Receive Date: 20190328
  Receipt Date: 20190328
  Transmission Date: 20190418
  Serious: Yes (Hospitalization, Other)
  Sender: FDA-Public Use
  Company Number: ES-MYLANLABS-2019M1028301

PATIENT
  Age: 91 Year
  Sex: Female

DRUGS (7)
  1. AMERIDE                            /00206601/ [Interacting]
     Active Substance: AMILORIDE HYDROCHLORIDE\HYDROCHLOROTHIAZIDE
     Indication: HYPERTENSION
     Dosage: 1 DOSAGE FORM, QD(1-0-0)
     Route: 048
     Dates: start: 1999, end: 20170921
  2. SINERGINA                          /00017401/ [Concomitant]
     Dosage: 100 MILLIGRAM, BID(1-0-1)
     Route: 048
  3. LISINOPRIL. [Suspect]
     Active Substance: LISINOPRIL
     Indication: HYPERTENSION
     Dosage: 1/2-0-0
     Route: 048
     Dates: start: 2009, end: 20170921
  4. SINTROM [Concomitant]
     Active Substance: ACENOCOUMAROL
     Indication: ATRIAL FIBRILLATION
     Dosage: MEDIO DIARIO, DOMIGOS 3/4
     Route: 048
  5. PROMETAX                           /01383201/ [Concomitant]
     Active Substance: RIVASTIGMINE
     Dosage: UN PARCHE DIARIO
     Route: 062
  6. QUETIAPINA                         /01270901/ [Concomitant]
     Active Substance: QUETIAPINE
     Dosage: 50 MILLIGRAM, Q8H(1-1-1)
     Route: 048
  7. TARDYFERON [Concomitant]
     Active Substance: FERROUS SULFATE
     Dosage: 1-0-0
     Route: 048

REACTIONS (5)
  - Drug interaction [Unknown]
  - Hypotension [Recovered/Resolved]
  - Hyperkalaemia [Recovered/Resolved]
  - Acute kidney injury [Recovered/Resolved]
  - Hyponatraemia [Recovering/Resolving]

NARRATIVE: CASE EVENT DATE: 2017
